FAERS Safety Report 21687852 (Version 1)
Quarter: 2022Q4

REPORT INFORMATION
  Report Type: Other
  Country: CN (occurrence: CN)
  Receive Date: 20221206
  Receipt Date: 20221206
  Transmission Date: 20230112
  Serious: Yes (Hospitalization)
  Sender: FDA-Public Use
  Company Number: CN-002147023-NVSC2022CN263876

PATIENT

DRUGS (3)
  1. RUXOLITINIB [Suspect]
     Active Substance: RUXOLITINIB
     Indication: Myeloproliferative neoplasm
     Dosage: 10 MG, BID, (ONCE IN THE MORNING AND ONCE IN THE EVENING)
     Route: 045
     Dates: start: 20220516, end: 20221118
  2. THALIDOMIDE [Suspect]
     Active Substance: THALIDOMIDE
     Indication: Myeloproliferative neoplasm
     Dosage: 25 MG, BID, (ONCE IN THE MORNING AND ONCE IN THE EVENING)
     Route: 045
     Dates: start: 20220516, end: 20221118
  3. DANAZOL [Suspect]
     Active Substance: DANAZOL
     Indication: Myeloproliferative neoplasm
     Dosage: 0.2 G, BID
     Route: 045
     Dates: start: 20220516, end: 20221118

REACTIONS (4)
  - Confusional state [Unknown]
  - Fall [Unknown]
  - Product use in unapproved indication [Unknown]
  - White blood cell count decreased [Recovered/Resolved]

NARRATIVE: CASE EVENT DATE: 20220516
